FAERS Safety Report 26119998 (Version 2)
Quarter: 2025Q4

REPORT INFORMATION
  Report Type: Spontaneous
  Country: US (occurrence: US)
  Receive Date: 20251204
  Receipt Date: 20251209
  Transmission Date: 20260118
  Serious: Yes (Hospitalization, Other)
  Sender: RANBAXY
  Company Number: US-SUN PHARMACEUTICAL INDUSTRIES INC-2025R1-539359

PATIENT
  Age: 41 Year
  Sex: Male

DRUGS (2)
  1. HYDRALAZINE [Suspect]
     Active Substance: HYDRALAZINE HYDROCHLORIDE
     Indication: Sinus bradycardia
     Dosage: UNK
     Route: 065
  2. LORAZEPAM [Suspect]
     Active Substance: LORAZEPAM
     Indication: Sinus bradycardia
     Dosage: UNK
     Route: 065

REACTIONS (2)
  - Drug ineffective [Unknown]
  - Condition aggravated [Unknown]
